FAERS Safety Report 20438826 (Version 7)
Quarter: 2024Q2

REPORT INFORMATION
  Report Type: Spontaneous
  Country: US (occurrence: US)
  Receive Date: 20220207
  Receipt Date: 20240412
  Transmission Date: 20240716
  Serious: Yes (Other)
  Sender: FDA-Public Use
  Company Number: US-PFIZER INC-202101566280

PATIENT
  Age: 68 Year
  Sex: Male

DRUGS (1)
  1. XELJANZ XR [Suspect]
     Active Substance: TOFACITINIB CITRATE
     Indication: Rheumatoid arthritis
     Dosage: 11 MG

REACTIONS (8)
  - Cataract [Unknown]
  - Neoplasm malignant [Unknown]
  - Respiratory tract congestion [Unknown]
  - Immune system disorder [Unknown]
  - Oropharyngeal pain [Unknown]
  - Cough [Unknown]
  - Blood pressure abnormal [Unknown]
  - Condition aggravated [Unknown]
